FAERS Safety Report 9069078 (Version 1)
Quarter: 2013Q1

REPORT INFORMATION
  Report Type: Spontaneous
  Country: US (occurrence: None)
  Receive Date: 20130213
  Receipt Date: 20130213
  Transmission Date: 20140127
  Serious: Yes (Hospitalization)
  Sender: FDA-Public Use
  Company Number: None

PATIENT
  Sex: Male
  Weight: 58.05 kg

DRUGS (6)
  1. PACLITAXEL (TAXOL) [Suspect]
  2. CARBOPLATIN [Suspect]
  3. BEVACIZUMAB [Suspect]
  4. HYDROCODONE [Concomitant]
  5. ACETAMINOPHEN [Concomitant]
  6. MORPHINE [Concomitant]

REACTIONS (6)
  - Dyspnoea [None]
  - Abdominal pain [None]
  - Diverticulum intestinal [None]
  - Faecaloma [None]
  - Pneumoperitoneum [None]
  - Intestinal perforation [None]
